FAERS Safety Report 8052535-0 (Version None)
Quarter: 2012Q1

REPORT INFORMATION
  Report Type: 
  Country: None (occurrence: None)
  Receive Date: 20120117
  Receipt Date: 20120117
  Transmission Date: 20120608
  Serious: Yes (Hospitalization)
  Sender: FDA-Public Use
  Company Number: None

PATIENT

DRUGS (2)
  1. ARIPIPRAZOLE [Suspect]
     Dosage: 10 MG AM PO
     Route: 048
     Dates: start: 20110808, end: 20110811
  2. ZIPRASIDONE HYDROCHLORIDE [Suspect]
     Dosage: 40 MG BID PO
     Route: 048
     Dates: start: 20110808, end: 20110811

REACTIONS (2)
  - HYPOTENSION [None]
  - MENTAL STATUS CHANGES [None]
